FAERS Safety Report 5405361-2 (Version None)
Quarter: 2007Q3

REPORT INFORMATION
  Report Type: 
  Country: None (occurrence: None)
  Receive Date: 20070803
  Receipt Date: 20070726
  Transmission Date: 20080115
  Serious: Yes (Life-Threatening, Hospitalization)
  Sender: FDA-Public Use
  Company Number: FR-ABBOTT-07P-056-0375849-00

PATIENT
  Sex: Female

DRUGS (4)
  1. HUMIRA [Suspect]
     Indication: RHEUMATOID ARTHRITIS
     Route: 058
     Dates: start: 20050426, end: 20070322
  2. HUMIRA [Suspect]
     Route: 058
     Dates: start: 20070505
  3. METHOTREXATE [Suspect]
     Indication: RHEUMATOID ARTHRITIS
     Route: 048
     Dates: start: 19971115
  4. PREDNISONE TAB [Suspect]
     Indication: RHEUMATOID ARTHRITIS
     Dates: start: 19990115

REACTIONS (6)
  - DIARRHOEA [None]
  - LISTERIA SEPSIS [None]
  - LISTERIOSIS [None]
  - PYREXIA [None]
  - SEPTIC SHOCK [None]
  - VOMITING [None]
